FAERS Safety Report 25310152 (Version 1)
Quarter: 2025Q2

REPORT INFORMATION
  Report Type: Spontaneous
  Country: US (occurrence: US)
  Receive Date: 20250514
  Receipt Date: 20250514
  Transmission Date: 20250716
  Serious: No
  Sender: SANDOZ
  Company Number: US-SANDOZ-SDZ2023US013860

PATIENT

DRUGS (1)
  1. POLYMYXIN B SULFATE\TRIMETHOPRIM [Suspect]
     Active Substance: POLYMYXIN B SULFATE\TRIMETHOPRIM
     Indication: Product used for unknown indication
     Route: 065
     Dates: start: 20230804, end: 20230807

REACTIONS (2)
  - Eye pruritus [Unknown]
  - Eye irritation [Unknown]
